FAERS Safety Report 12549239 (Version 2)
Quarter: 2016Q3

REPORT INFORMATION
  Report Type: Report from Study
  Country: US (occurrence: US)
  Receive Date: 20160712
  Receipt Date: 20160901
  Transmission Date: 20161109
  Serious: Yes (Death, Hospitalization, Other)
  Sender: FDA-Public Use
  Company Number: PHEH2016US017083

PATIENT
  Sex: Female
  Weight: 64 kg

DRUGS (3)
  1. HYCAMTIN [Suspect]
     Active Substance: TOPOTECAN HYDROCHLORIDE
     Indication: SQUAMOUS CELL CARCINOMA OF THE CERVIX
     Dosage: UNK
     Route: 042
  2. CISPLATIN. [Concomitant]
     Active Substance: CISPLATIN
     Indication: PRODUCT USED FOR UNKNOWN INDICATION
     Route: 065
  3. AVASTIN [Concomitant]
     Active Substance: BEVACIZUMAB
     Indication: PRODUCT USED FOR UNKNOWN INDICATION
     Route: 065

REACTIONS (14)
  - Vaginal haemorrhage [Unknown]
  - Metastases to lung [Unknown]
  - Hypovolaemic shock [Fatal]
  - Abdominal pain [Recovered/Resolved]
  - Malignant neoplasm progression [Fatal]
  - Bradycardia [Fatal]
  - Uterine haemorrhage [Unknown]
  - Thrombosis [Unknown]
  - Hypotension [Fatal]
  - Tachycardia [Fatal]
  - Dizziness [Fatal]
  - Shock haemorrhagic [Unknown]
  - Cardiac arrest [Fatal]
  - Squamous cell carcinoma of the cervix [Fatal]
